FAERS Safety Report 6146573-2 (Version None)
Quarter: 2009Q2

REPORT INFORMATION
  Report Type: 
  Country: None (occurrence: None)
  Receive Date: 20090403
  Receipt Date: 20090325
  Transmission Date: 20091009
  Serious: Yes (Other)
  Sender: FDA-Public Use
  Company Number: CHPA2009US07864

PATIENT
  Age: 30 Year
  Sex: Female

DRUGS (1)
  1. TRIAMINIC NIGHT TIME COLD #COUGH (NCH) (DIPHENHYDRAMINE, PHENYEPHRINE) [Suspect]
     Indication: COUGH
     Dosage: 3.5 TSP, ONCE/SINGLE, ORAL
     Route: 048
     Dates: start: 20090324, end: 20090324

REACTIONS (7)
  - DYSPNOEA [None]
  - FEELING JITTERY [None]
  - HEART RATE INCREASED [None]
  - HYPOKINESIA [None]
  - INSOMNIA [None]
  - NERVOUSNESS [None]
  - NIGHTMARE [None]
